FAERS Safety Report 25241101 (Version 2)
Quarter: 2025Q2

REPORT INFORMATION
  Report Type: Report from Study
  Country: US (occurrence: US)
  Receive Date: 20250425
  Receipt Date: 20250522
  Transmission Date: 20250716
  Serious: Yes (Hospitalization)
  Sender: BAYER HEALTHCARE PHARMACEUTICALS INC.
  Company Number: US-BAYER-2025A054255

PATIENT
  Age: 82 Year
  Sex: Female
  Weight: 63.492 kg

DRUGS (15)
  1. ADEMPAS [Suspect]
     Active Substance: RIOCIGUAT
     Indication: Pulmonary arterial hypertension
     Route: 048
     Dates: start: 20200504
  2. ADEMPAS [Suspect]
     Active Substance: RIOCIGUAT
     Indication: Pulmonary arterial hypertension
     Dosage: 1 MG, TID
     Route: 048
  3. LIPITOR [Concomitant]
     Active Substance: ATORVASTATIN CALCIUM
  4. PRIMIDONE [Concomitant]
     Active Substance: PRIMIDONE
  5. SENNA [Concomitant]
     Active Substance: SENNOSIDES
  6. TYLENOL [Concomitant]
     Active Substance: ACETAMINOPHEN
  7. SPIRIVA [Concomitant]
     Active Substance: TIOTROPIUM BROMIDE MONOHYDRATE
  8. LASIX [Concomitant]
     Active Substance: FUROSEMIDE
  9. COREG [Concomitant]
     Active Substance: CARVEDILOL
  10. KEPPRA [Concomitant]
     Active Substance: LEVETIRACETAM
  11. WARFARIN SODIUM [Concomitant]
     Active Substance: WARFARIN SODIUM
  12. OXYGEN [Concomitant]
     Active Substance: OXYGEN
  13. SYNTHROID [Concomitant]
     Active Substance: LEVOTHYROXINE SODIUM
  14. DETROL [Concomitant]
     Active Substance: TOLTERODINE TARTRATE
  15. FERROUS SULFATE [Concomitant]
     Active Substance: FERROUS SULFATE

REACTIONS (3)
  - Thrombosis [None]
  - Chest pain [None]
  - Lung neoplasm [None]

NARRATIVE: CASE EVENT DATE: 20250404
